FAERS Safety Report 4501182-3 (Version None)
Quarter: 2004Q3

REPORT INFORMATION
  Report Type: 
  Country: None (occurrence: None)
  Receive Date: 20040927
  Receipt Date: 20040812
  Transmission Date: 20050211
  Serious: No
  Sender: FDA-Public Use
  Company Number: USA040875435

PATIENT
  Age: 9 Year
  Sex: Female

DRUGS (2)
  1. STRATTERA [Suspect]
     Indication: ATTENTION DEFICIT/HYPERACTIVITY DISORDER
     Dosage: 40 MG
     Dates: start: 20030101
  2. CONCERTA [Concomitant]

REACTIONS (4)
  - FEELING ABNORMAL [None]
  - LETHARGY [None]
  - SOMNOLENCE [None]
  - WEIGHT DECREASED [None]
